FAERS Safety Report 13098235 (Version 1)
Quarter: 2017Q1

REPORT INFORMATION
  Report Type: Spontaneous
  Country: AU (occurrence: AU)
  Receive Date: 20170109
  Receipt Date: 20170109
  Transmission Date: 20170428
  Serious: Yes (Hospitalization, Other)
  Sender: FDA-Public Use
  Company Number: AU-TOLMAR, INC.-2016AU000026

PATIENT
  Sex: Male

DRUGS (1)
  1. ELIGARD [Suspect]
     Active Substance: LEUPROLIDE ACETATE
     Indication: PROSTATE CANCER
     Dosage: 7.5 MG, EVERY MONTH
     Route: 065
     Dates: start: 20150904

REACTIONS (5)
  - Skin exfoliation [Unknown]
  - Nausea [Unknown]
  - Dermatitis [Unknown]
  - Hypertension [Unknown]
  - Hyperhidrosis [Unknown]
